FAERS Safety Report 19397460 (Version 1)
Quarter: 2021Q2

REPORT INFORMATION
  Report Type: Spontaneous
  Country: SI (occurrence: SI)
  Receive Date: 20210609
  Receipt Date: 20210609
  Transmission Date: 20210717
  Serious: Yes (Other)
  Sender: FDA-Public Use
  Company Number: SI-JNJFOC-20210608955

PATIENT
  Age: 21 Year
  Sex: Male
  Weight: 69 kg

DRUGS (3)
  1. STELARA [Suspect]
     Active Substance: USTEKINUMAB
     Indication: PROCTITIS ULCERATIVE
     Route: 042
     Dates: start: 20210531, end: 20210531
  2. SALOFALK [MESALAZINE] [Concomitant]
     Active Substance: MESALAMINE
  3. AZAFALK [Concomitant]
     Active Substance: AZATHIOPRINE

REACTIONS (3)
  - Infusion related reaction [Recovered/Resolved]
  - Urticaria [Recovered/Resolved]
  - Dyspnoea [Recovered/Resolved]

NARRATIVE: CASE EVENT DATE: 20210531
